FAERS Safety Report 5272891-6 (Version None)
Quarter: 2007Q1

REPORT INFORMATION
  Report Type: 
  Country: None (occurrence: None)
  Receive Date: 20070322
  Receipt Date: 20070312
  Transmission Date: 20070707
  Serious: Yes (Hospitalization, Other)
  Sender: FDA-Public Use
  Company Number: 2007AC00420

PATIENT
  Age: 88 Year
  Sex: Male

DRUGS (3)
  1. QUETIAPINE FUMARATE [Suspect]
  2. LAXATIVES [Suspect]
     Indication: CONSTIPATION
  3. FAMOTIDINE [Concomitant]

REACTIONS (1)
  - VOLVULUS [None]
